FAERS Safety Report 18446512 (Version 1)
Quarter: 2020Q4

REPORT INFORMATION
  Report Type: Spontaneous
  Country: US (occurrence: US)
  Receive Date: 20201030
  Receipt Date: 20201030
  Transmission Date: 20210114
  Serious: Yes (Hospitalization)
  Sender: FDA-Public Use
  Company Number: None

PATIENT
  Age: 70 Year
  Sex: Female

DRUGS (12)
  1. SMZ/TMP [Concomitant]
     Active Substance: SULFAMETHOXAZOLE\TRIMETHOPRIM
  2. RIFAMPIN. [Concomitant]
     Active Substance: RIFAMPIN
  3. TOBRAMYCIN 300MG/5ML [Suspect]
     Active Substance: TOBRAMYCIN
  4. MUPIROCIN. [Concomitant]
     Active Substance: MUPIROCIN
  5. METOPROLOL TARTRATE. [Concomitant]
     Active Substance: METOPROLOL TARTRATE
  6. BENZONATATE. [Concomitant]
     Active Substance: BENZONATATE
  7. CLONIDINE. [Concomitant]
     Active Substance: CLONIDINE
  8. LEVOFLOXACIN. [Concomitant]
     Active Substance: LEVOFLOXACIN
  9. ONDANSETRON [Suspect]
     Active Substance: ONDANSETRON
  10. CIPROFLOXACN [Concomitant]
     Active Substance: CIPROFLOXACIN
  11. IRBESARTAN. [Concomitant]
     Active Substance: IRBESARTAN
  12. NYSTATIN. [Concomitant]
     Active Substance: NYSTATIN

REACTIONS (2)
  - Dysphagia [None]
  - Cerebrovascular accident [None]

NARRATIVE: CASE EVENT DATE: 20201003
